FAERS Safety Report 21741653 (Version 2)
Quarter: 2022Q4

REPORT INFORMATION
  Report Type: Spontaneous
  Country: CN (occurrence: CN)
  Receive Date: 20221216
  Receipt Date: 20221229
  Transmission Date: 20230112
  Serious: Yes (Hospitalization, Other)
  Sender: FDA-Public Use
  Company Number: CN-FOSUNKITE-FOSUNKITE-20220624

PATIENT
  Sex: Male

DRUGS (17)
  1. YESCARTA [Suspect]
     Active Substance: AXICABTAGENE CILOLEUCEL
     Indication: Diffuse large B-cell lymphoma
     Dosage: 68 MG, SINGLE DOSE
     Route: 040
     Dates: start: 20220908, end: 20220908
  2. FLUDARABINE [Concomitant]
     Active Substance: FLUDARABINE PHOSPHATE
     Indication: Lymphodepletion
     Dosage: 50 MG
     Dates: start: 20220901, end: 20220903
  3. CYCLOPHOSPHAMIDE [Concomitant]
     Active Substance: CYCLOPHOSPHAMIDE
     Indication: Lymphodepletion
     Dosage: 1200 MG
     Dates: start: 20220901, end: 20220903
  4. DEXAMETHASONE SODIUM PHOSPHATE [Concomitant]
     Active Substance: DEXAMETHASONE SODIUM PHOSPHATE
     Dosage: 5 MG
     Route: 037
     Dates: start: 20220822
  5. DEXAMETHASONE SODIUM PHOSPHATE [Concomitant]
     Active Substance: DEXAMETHASONE SODIUM PHOSPHATE
     Dosage: 10 MG
     Dates: start: 20220914
  6. CYTARABINE [Concomitant]
     Active Substance: CYTARABINE
     Dosage: 50 MG
     Route: 037
     Dates: start: 20220822
  7. CYTARABINE [Concomitant]
     Active Substance: CYTARABINE
     Dosage: 50 MG
     Dates: start: 20221019
  8. METHOTREXATE [Concomitant]
     Active Substance: METHOTREXATE
     Dosage: 10 MG
     Route: 037
     Dates: start: 20220822
  9. METHOTREXATE [Concomitant]
     Active Substance: METHOTREXATE
     Dosage: 10 MG
     Dates: start: 20221019
  10. PLATELETS [Concomitant]
     Active Substance: HUMAN PLATELET, ALLOGENIC
     Indication: Haemorrhage prophylaxis
  11. CARBAZOCHROME SODIUM SULFONATE [Concomitant]
     Active Substance: CARBAZOCHROME SODIUM SULFONATE
     Indication: Haemorrhage prophylaxis
     Dosage: UNK
     Dates: start: 20220910
  12. SODIUM CHLORIDE [Concomitant]
     Active Substance: SODIUM CHLORIDE
     Indication: Haemorrhage prophylaxis
     Dosage: UNK
     Dates: start: 20220910
  13. SODIUM CHLORIDE [Concomitant]
     Active Substance: SODIUM CHLORIDE
     Dosage: 10%, 20 MG
     Route: 048
     Dates: start: 20220917
  14. TOCILIZUMAB [Concomitant]
     Active Substance: TOCILIZUMAB
     Indication: Pyrexia
     Dosage: 1 DOSE
     Dates: start: 20220913
  15. TOCILIZUMAB [Concomitant]
     Active Substance: TOCILIZUMAB
     Dosage: 1 DOSE
     Dates: start: 20220915
  16. TOCILIZUMAB [Concomitant]
     Active Substance: TOCILIZUMAB
     Dosage: 1 DOSE
     Dates: start: 20220916
  17. TOCILIZUMAB [Concomitant]
     Active Substance: TOCILIZUMAB
     Dosage: 1 DOSE
     Dates: start: 20220927

REACTIONS (2)
  - Cytokine release syndrome [Recovering/Resolving]
  - Hypokalaemia [Recovering/Resolving]

NARRATIVE: CASE EVENT DATE: 20220913
